FAERS Safety Report 25850586 (Version 1)
Quarter: 2025Q3

REPORT INFORMATION
  Report Type: Spontaneous
  Country: CN (occurrence: CN)
  Receive Date: 20250926
  Receipt Date: 20250926
  Transmission Date: 20251020
  Serious: Yes (Death, Other)
  Sender: Kenvue
  Company Number: None

PATIENT

DRUGS (1)
  1. LOPERAMIDE [Suspect]
     Active Substance: LOPERAMIDE
     Indication: Diarrhoea
     Route: 048

REACTIONS (13)
  - Unresponsive to stimuli [Fatal]
  - Cardio-respiratory arrest [Fatal]
  - Brain injury [Fatal]
  - Sinus tachycardia [Fatal]
  - White blood cell count increased [Fatal]
  - Alanine aminotransferase increased [Fatal]
  - Aspartate aminotransferase increased [Fatal]
  - Blood creatine phosphokinase increased [Fatal]
  - Blood lactate dehydrogenase increased [Fatal]
  - Blood creatinine decreased [Fatal]
  - Troponin I increased [Fatal]
  - Electrocardiogram QT prolonged [Fatal]
  - Intentional overdose [Fatal]
